FAERS Safety Report 25245622 (Version 6)
Quarter: 2025Q2

REPORT INFORMATION
  Report Type: Spontaneous
  Country: US (occurrence: US)
  Receive Date: 20250428
  Receipt Date: 20250610
  Transmission Date: 20250716
  Serious: No
  Sender: PFIZER
  Company Number: US-PFIZER INC-202500083306

PATIENT
  Age: 78 Year
  Sex: Female
  Weight: 56.689 kg

DRUGS (8)
  1. ZAVZPRET [Suspect]
     Active Substance: ZAVEGEPANT HYDROCHLORIDE
     Indication: Headache
     Dosage: 10 MG, 1X/DAY (1 DOSE IN 24 HOURS)
     Route: 045
     Dates: start: 202501
  2. LEVOTHYROXINE [Concomitant]
     Active Substance: LEVOTHYROXINE
     Indication: Thyroid disorder
     Dosage: .075 MG, 1X/DAY
     Dates: start: 2005
  3. ATORVASTATIN [Concomitant]
     Active Substance: ATORVASTATIN
     Indication: Blood pressure abnormal
     Dosage: 80 MG, 1X/DAY
     Dates: start: 2017
  4. ATORVASTATIN [Concomitant]
     Active Substance: ATORVASTATIN
     Indication: Blood cholesterol abnormal
  5. LOSARTAN [Concomitant]
     Active Substance: LOSARTAN
     Indication: Blood pressure abnormal
     Dosage: 50 MG, 1X/DAY
  6. LOSARTAN [Concomitant]
     Active Substance: LOSARTAN
     Indication: Blood cholesterol abnormal
  7. CLOPIDOGREL [Concomitant]
     Active Substance: CLOPIDOGREL BISULFATE
     Indication: Cerebrovascular accident
     Dosage: 75 MG, 1X/DAY
  8. SERTRALINE [Concomitant]
     Active Substance: SERTRALINE HYDROCHLORIDE
     Indication: Generalised anxiety disorder
     Dates: start: 20250401

REACTIONS (6)
  - Drug ineffective [Recovered/Resolved]
  - Nasal discomfort [Recovered/Resolved]
  - Pain [Recovered/Resolved]
  - Cold-stimulus headache [Recovered/Resolved]
  - Lacrimation increased [Recovered/Resolved]
  - Off label use [Unknown]

NARRATIVE: CASE EVENT DATE: 20250101
